FAERS Safety Report 9104404 (Version 3)
Quarter: 2013Q1

REPORT INFORMATION
  Report Type: Report from Study
  Country: NL (occurrence: NL)
  Receive Date: 20130220
  Receipt Date: 20130304
  Transmission Date: 20140127
  Serious: Yes (Other)
  Sender: FDA-Public Use
  Company Number: NL-CELGENEUS-114-21880-13021484

PATIENT
  Age: 82 Year
  Sex: Male
  Weight: 106 kg

DRUGS (1)
  1. REVLIMID [Suspect]
     Indication: MYELODYSPLASTIC SYNDROME
     Route: 048
     Dates: start: 20121128, end: 20121218

REACTIONS (1)
  - Bladder transitional cell carcinoma [Not Recovered/Not Resolved]
